FAERS Safety Report 15884698 (Version 1)
Quarter: 2019Q1

REPORT INFORMATION
  Report Type: Spontaneous
  Country: JP (occurrence: JP)
  Receive Date: 20190129
  Receipt Date: 20190129
  Transmission Date: 20190417
  Serious: Yes (Hospitalization)
  Sender: FDA-Public Use
  Company Number: JP-AMREGENT-20190116

PATIENT
  Age: 27 Year
  Sex: Female
  Weight: 80 kg

DRUGS (3)
  1. MORPHINE HYDROCHLORIDE [Concomitant]
     Active Substance: MORPHINE HYDROCHLORIDE
     Dosage: UNKNOWN
     Route: 008
  2. DROREPTAN (DROPERIDOL-DSI) [Suspect]
     Active Substance: DROPERIDOL
     Dosage: UNKNOWN
     Route: 008
  3. ISOTONIC SODIUM CHLORIDE SOLUTION [Concomitant]
     Active Substance: SODIUM CHLORIDE
     Dosage: UNKNOWN
     Route: 008

REACTIONS (1)
  - Headache [Recovering/Resolving]
